FAERS Safety Report 7035406-8 (Version None)
Quarter: 2010Q4

REPORT INFORMATION
  Report Type: 
  Country: None (occurrence: None)
  Receive Date: 20101007
  Receipt Date: 20101007
  Transmission Date: 20110411
  Serious: Yes (Other)
  Sender: FDA-Public Use
  Company Number: None

PATIENT
  Age: 42 Year
  Sex: Female
  Weight: 68.0396 kg

DRUGS (1)
  1. LYRICA [Suspect]
     Indication: FIBROMYALGIA
     Dosage: PO
     Route: 048
     Dates: start: 20070620, end: 20080318

REACTIONS (3)
  - AMNESIA [None]
  - APHASIA [None]
  - SPEECH DISORDER [None]
